FAERS Safety Report 17289678 (Version 29)
Quarter: 2025Q1

REPORT INFORMATION
  Report Type: Report from Study
  Country: US (occurrence: US)
  Receive Date: 20200120
  Receipt Date: 20250317
  Transmission Date: 20250409
  Serious: Yes (Other)
  Sender: TAKEDA
  Company Number: US-SHIRE-US202001340

PATIENT
  Age: 74 Year
  Sex: Female
  Weight: 102 kg

DRUGS (27)
  1. HUMAN IMMUNOGLOBULIN G [Suspect]
     Active Substance: HUMAN IMMUNOGLOBULIN G
     Indication: Immunodeficiency common variable
     Dosage: 8 GRAM, 1/WEEK
     Dates: start: 20160531
  2. HUMAN IMMUNOGLOBULIN G [Suspect]
     Active Substance: HUMAN IMMUNOGLOBULIN G
     Dosage: 8 GRAM, 1/WEEK
     Dates: start: 20160601
  3. HUMAN IMMUNOGLOBULIN G [Suspect]
     Active Substance: HUMAN IMMUNOGLOBULIN G
  4. HUMAN IMMUNOGLOBULIN G [Suspect]
     Active Substance: HUMAN IMMUNOGLOBULIN G
     Dosage: 9 GRAM, 1/WEEK
  5. ACETAMINOPHEN [Concomitant]
     Active Substance: ACETAMINOPHEN
  6. RAMIPRIL [Concomitant]
     Active Substance: RAMIPRIL
  7. LIDOCAINE [Concomitant]
     Active Substance: LIDOCAINE
  8. DIPHENHYDRAMINE HYDROCHLORIDE [Concomitant]
     Active Substance: DIPHENHYDRAMINE HYDROCHLORIDE
  9. LOSARTAN POTASSIUM [Concomitant]
     Active Substance: LOSARTAN POTASSIUM
  10. DIPHENHYDRAMINE [Concomitant]
     Active Substance: DIPHENHYDRAMINE
  11. EPINEPHRINE [Concomitant]
     Active Substance: EPINEPHRINE
  12. AMOXICILLIN [Concomitant]
     Active Substance: AMOXICILLIN
  13. VANCOMYCIN [Concomitant]
     Active Substance: VANCOMYCIN
  14. LEVAQUIN [Concomitant]
     Active Substance: LEVOFLOXACIN
  15. MUCINEX [Concomitant]
     Active Substance: GUAIFENESIN
  16. NORVASC [Concomitant]
     Active Substance: AMLODIPINE BESYLATE
  17. JANUVIA [Concomitant]
     Active Substance: SITAGLIPTIN PHOSPHATE
  18. CYMBALTA [Concomitant]
     Active Substance: DULOXETINE HYDROCHLORIDE
  19. SINGULAIR [Concomitant]
     Active Substance: MONTELUKAST SODIUM
  20. AMBIEN CR [Concomitant]
     Active Substance: ZOLPIDEM TARTRATE
  21. FENOFIBRATE [Concomitant]
     Active Substance: FENOFIBRATE
  22. HYDROCHLOROTHIAZIDE [Concomitant]
     Active Substance: HYDROCHLOROTHIAZIDE
  23. SERTRALINE [Concomitant]
     Active Substance: SERTRALINE HYDROCHLORIDE
  24. LIOTHYRONINE [Concomitant]
     Active Substance: LIOTHYRONINE
  25. OCUVITE [ASCORBIC ACID;RETINOL;TOCOPHEROL] [Concomitant]
  26. TESSALON [Concomitant]
     Active Substance: BENZONATATE
  27. FARXIGA [Concomitant]
     Active Substance: DAPAGLIFLOZIN PROPANEDIOL

REACTIONS (27)
  - Respiratory tract infection [Unknown]
  - Cataract [Unknown]
  - Illness [Unknown]
  - Fall [Unknown]
  - Peripheral swelling [Unknown]
  - Infectious mononucleosis [Unknown]
  - Skin discolouration [Unknown]
  - Nasopharyngitis [Unknown]
  - Viral infection [Unknown]
  - Ear infection [Unknown]
  - Eye infection [Not Recovered/Not Resolved]
  - Infusion related reaction [Recovered/Resolved]
  - Eye haemorrhage [Unknown]
  - Depressed mood [Unknown]
  - Injection site bruising [Unknown]
  - Inappropriate schedule of product administration [Unknown]
  - Intervertebral disc disorder [Unknown]
  - Sinusitis [Unknown]
  - Influenza [Recovering/Resolving]
  - Infusion site bruising [Unknown]
  - Lethargy [Unknown]
  - Asthenia [Unknown]
  - Pain [Recovered/Resolved]
  - Myalgia [Unknown]
  - Arthralgia [Unknown]
  - Dizziness [Recovered/Resolved]
  - Fatigue [Recovered/Resolved]

NARRATIVE: CASE EVENT DATE: 20221205
